FAERS Safety Report 5878417-8 (Version None)
Quarter: 2008Q3

REPORT INFORMATION
  Report Type: 
  Country: None (occurrence: None)
  Receive Date: 20080909
  Receipt Date: 20080825
  Transmission Date: 20090109
  Serious: Yes (Hospitalization)
  Sender: FDA-Public Use
  Company Number: 1000000375

PATIENT
  Age: 78 Year
  Sex: Female
  Weight: 57 kg

DRUGS (2)
  1. ESCITALOPRAM [Suspect]
     Indication: DEPRESSION
     Dosage: 5 MG (5 MG, 1 IN 1 D), ORAL, ORAL
     Route: 048
     Dates: start: 20080402, end: 20080101
  2. ESCITALOPRAM [Suspect]
     Indication: DEPRESSION
     Dosage: 5 MG (5 MG, 1 IN 1 D), ORAL, ORAL
     Route: 048
     Dates: start: 20080101, end: 20080810

REACTIONS (7)
  - ANAEMIA [None]
  - DIARRHOEA [None]
  - FATIGUE [None]
  - FLATULENCE [None]
  - HAEMATEMESIS [None]
  - SCAN ADRENAL GLAND ABNORMAL [None]
  - UTERINE LEIOMYOMA [None]
